FAERS Safety Report 10096445 (Version 2)
Quarter: 2015Q3

REPORT INFORMATION
  Report Type: Spontaneous
  Country: US (occurrence: US)
  Receive Date: 20140422
  Receipt Date: 20150813
  Transmission Date: 20151125
  Serious: No
  Sender: FDA-Public Use
  Company Number: US-GILEAD-2012-0063925

PATIENT
  Age: 40 Year
  Sex: Female

DRUGS (1)
  1. LETAIRIS [Suspect]
     Active Substance: AMBRISENTAN
     Indication: CONGENITAL ANOMALY
     Dosage: 5 MG, QD
     Route: 048
     Dates: start: 20120717

REACTIONS (2)
  - Feeling abnormal [Unknown]
  - Unevaluable event [Unknown]
